FAERS Safety Report 9871116 (Version 2)
Quarter: 2014Q1

REPORT INFORMATION
  Report Type: Spontaneous
  Country: US (occurrence: US)
  Receive Date: 20140205
  Receipt Date: 20140205
  Transmission Date: 20141002
  Serious: No
  Sender: FDA-Public Use
  Company Number: US-GILEAD-2013-0078229

PATIENT
  Age: 52 Year
  Sex: Male
  Weight: 105.21 kg

DRUGS (5)
  1. STRIBILD [Suspect]
     Indication: HIV INFECTION
     Dosage: UNK
     Route: 048
     Dates: start: 201305
  2. FLOMAX /01280302/ [Interacting]
     Indication: BENIGN PROSTATIC HYPERPLASIA
     Dosage: 0.4 MG, UNK
     Route: 048
     Dates: start: 201302, end: 201306
  3. ATRIPLA [Concomitant]
     Indication: PRODUCT USED FOR UNKNOWN INDICATION
  4. TESTOSTERONE [Concomitant]
     Indication: BENIGN PROSTATIC HYPERPLASIA
     Dosage: 100 UNKNOWN, UNK
     Route: 030
     Dates: start: 2010
  5. FINASTERIDE [Concomitant]
     Indication: BENIGN PROSTATIC HYPERPLASIA
     Dosage: 5 MG, UNK

REACTIONS (2)
  - Retrograde ejaculation [Recovered/Resolved]
  - Drug interaction [Recovered/Resolved]
